FAERS Safety Report 8076180-6 (Version None)
Quarter: 2012Q1

REPORT INFORMATION
  Report Type: 
  Country: None (occurrence: None)
  Receive Date: 20120127
  Receipt Date: 20120109
  Transmission Date: 20120608
  Serious: No
  Sender: FDA-Public Use
  Company Number: US-ROXANE LABORATORIES, INC.-2012-RO-00455RO

PATIENT
  Age: 53 Year
  Sex: Male

DRUGS (3)
  1. PREDNISONE TAB [Suspect]
  2. LANTUS [Suspect]
  3. NOVOLOG MIX 70/30 [Suspect]

REACTIONS (1)
  - BLOOD GLUCOSE FLUCTUATION [None]
